FAERS Safety Report 25314812 (Version 1)
Quarter: 2025Q2

REPORT INFORMATION
  Report Type: Spontaneous
  Country: US (occurrence: US)
  Receive Date: 20250514
  Receipt Date: 20250514
  Transmission Date: 20250716
  Serious: Yes (Hospitalization)
  Sender: ALNYLAM PHARMACEUTICALS
  Company Number: US-ALNYLAM PHARMACEUTICALS, INC.-ALN-2025-003143

PATIENT

DRUGS (5)
  1. OXLUMO [Suspect]
     Active Substance: LUMASIRAN
     Indication: Primary hyperoxaluria
     Route: 065
  2. AZASAN [Concomitant]
     Active Substance: AZATHIOPRINE
     Indication: Immunosuppression
     Dosage: 37.5 MILLIGRAM, QD
     Route: 065
     Dates: start: 20211005, end: 20220705
  3. VITAMIN B6 [Concomitant]
     Active Substance: PYRIDOXINE HYDROCHLORIDE
     Indication: Primary hyperoxaluria
     Dosage: 100 MILLIGRAM, QD
     Route: 065
     Dates: start: 20210209, end: 20220605
  4. ETOMIDATE [Concomitant]
     Active Substance: ETOMIDATE
     Indication: Sedation
     Route: 065
  5. ROCURONIUM [Concomitant]
     Active Substance: ROCURONIUM BROMIDE
     Indication: Sedation
     Route: 065

REACTIONS (1)
  - Hypertensive emergency [Recovered/Resolved]

NARRATIVE: CASE EVENT DATE: 20220531
